FAERS Safety Report 25191948 (Version 1)
Quarter: 2025Q2

REPORT INFORMATION
  Report Type: Spontaneous
  Country: US (occurrence: None)
  Receive Date: 20250411
  Receipt Date: 20250411
  Transmission Date: 20250716
  Serious: Yes (Other)
  Sender: FDA-CTU
  Company Number: None

PATIENT
  Age: 54 Year
  Sex: Male
  Weight: 88.2 kg

DRUGS (7)
  1. TADALAFIL [Suspect]
     Active Substance: TADALAFIL
     Indication: Pulmonary arterial hypertension
     Dosage: 2 TABLETS ONCE DAILY BY MOUTH
     Dates: start: 20250109, end: 20250202
  2. Acira [Concomitant]
  3. OPSUMIT [Concomitant]
     Active Substance: MACITENTAN
  4. WARFARIN [Concomitant]
     Active Substance: WARFARIN
  5. FUROSEMIDE [Concomitant]
     Active Substance: FUROSEMIDE
  6. POTASSIUM CHLORIDE [Concomitant]
     Active Substance: POTASSIUM CHLORIDE
  7. Nadol [Concomitant]

REACTIONS (5)
  - Product substitution issue [None]
  - Headache [None]
  - Migraine [None]
  - Arthralgia [None]
  - Activities of daily living assessment [None]
